FAERS Safety Report 7913156-0 (Version None)
Quarter: 2011Q4

REPORT INFORMATION
  Report Type: 
  Country: None (occurrence: None)
  Receive Date: 20111114
  Receipt Date: 20111103
  Transmission Date: 20120403
  Serious: Yes (Other)
  Sender: FDA-Public Use
  Company Number: US-ASTRAZENECA-2011SE66488

PATIENT
  Sex: Male

DRUGS (12)
  1. UNSPECIFIED ANTIHISTAMINES [Suspect]
     Route: 065
  2. OMEPRAZOLE [Concomitant]
     Route: 048
  3. NASACORT [Suspect]
     Route: 065
  4. NASONEX [Suspect]
     Indication: RHINITIS
     Route: 045
     Dates: start: 20110801, end: 20110901
  5. SINGULAIR [Concomitant]
  6. RHINOCORT [Suspect]
     Route: 045
  7. METOPROLOL SUCCINATE [Concomitant]
     Route: 048
  8. SIMVASTATIN [Concomitant]
  9. FLONASE [Suspect]
     Route: 065
  10. COMBIVENT [Concomitant]
  11. NIFEDIPINE [Concomitant]
  12. NASONEX [Suspect]
     Route: 045

REACTIONS (11)
  - RHINITIS [None]
  - UNDERDOSE [None]
  - PHARYNGEAL OEDEMA [None]
  - GLOSSODYNIA [None]
  - DYSPHAGIA [None]
  - NASAL DISCOMFORT [None]
  - DYSPNOEA [None]
  - EPISTAXIS [None]
  - MALAISE [None]
  - OROPHARYNGEAL PAIN [None]
  - THROAT IRRITATION [None]
